FAERS Safety Report 8179772-9 (Version None)
Quarter: 2012Q1

REPORT INFORMATION
  Report Type: 
  Country: None (occurrence: None)
  Receive Date: 20120302
  Receipt Date: 20120223
  Transmission Date: 20120608
  Serious: Yes (Life-Threatening, Disabling)
  Sender: FDA-Public Use
  Company Number: JP-GE HEALTHCARE MEDICAL DIAGNOSTICS-MSTR-NO-1111S-0253

PATIENT
  Sex: Male
  Weight: 83.5 kg

DRUGS (3)
  1. ALLOPURINOL [Concomitant]
  2. METASTRON [Suspect]
     Indication: METASTATIC PAIN
     Route: 042
     Dates: start: 20111019, end: 20111019
  3. ASPARTATE CALCIUM [Concomitant]

REACTIONS (1)
  - TUMOUR LYSIS SYNDROME [None]
